FAERS Safety Report 6181107-8 (Version None)
Quarter: 2009Q2

REPORT INFORMATION
  Report Type: 
  Country: None (occurrence: None)
  Receive Date: 20090504
  Receipt Date: 20090504
  Transmission Date: 20091009
  Serious: No
  Sender: FDA-Public Use
  Company Number: None

PATIENT

DRUGS (3)
  1. DIGOXIN [Suspect]
     Dosage: TAKE HALF TAB ONCE DAILY PO
     Route: 048
     Dates: start: 20080901, end: 20090501
  2. DILTIAZEM [Concomitant]
  3. COUMADIN [Concomitant]

REACTIONS (11)
  - ABDOMINAL PAIN UPPER [None]
  - ASTHENIA [None]
  - ATRIAL FIBRILLATION [None]
  - CARDIOACTIVE DRUG LEVEL INCREASED [None]
  - CONJUNCTIVITIS [None]
  - DYSPNOEA [None]
  - FATIGUE [None]
  - GASTRITIS [None]
  - HEADACHE [None]
  - HYPOVENTILATION [None]
  - OESOPHAGITIS [None]
